FAERS Safety Report 8315722-X (Version None)
Quarter: 2012Q2

REPORT INFORMATION
  Report Type: 
  Country: None (occurrence: None)
  Receive Date: 20120426
  Receipt Date: 20120419
  Transmission Date: 20120825
  Serious: Yes (Hospitalization)
  Sender: FDA-Public Use
  Company Number: FR-MERCK-1204USA03261

PATIENT
  Age: 68 Year
  Sex: Male

DRUGS (7)
  1. GLUCOPHAGE [Concomitant]
     Indication: TYPE 2 DIABETES MELLITUS
     Route: 065
  2. INVANZ [Suspect]
     Indication: ENTEROBACTER INFECTION
     Route: 042
     Dates: start: 20120229, end: 20120304
  3. BACTRIM DS [Suspect]
     Indication: INFECTION
     Route: 048
     Dates: start: 20120227, end: 20120305
  4. LEVOTHYROXINE SODIUM [Concomitant]
     Indication: HYPOTHYROIDISM
     Route: 065
  5. BISOPROLOL FUMARATE [Concomitant]
     Indication: HYPERTENSION
     Route: 065
  6. LASIX [Concomitant]
     Indication: HYPERTENSION
     Route: 065
  7. ASPIRIN [Concomitant]
     Indication: THROMBOSIS PROPHYLAXIS
     Route: 065

REACTIONS (2)
  - NERVOUS SYSTEM DISORDER [None]
  - RENAL FAILURE ACUTE [None]
